FAERS Safety Report 15077207 (Version 2)
Quarter: 2018Q3

REPORT INFORMATION
  Report Type: Spontaneous
  Country: US (occurrence: US)
  Receive Date: 20180627
  Receipt Date: 20180731
  Transmission Date: 20181010
  Serious: Yes (Life-Threatening, Hospitalization, Disabling)
  Sender: FDA-Public Use
  Company Number: US-ACTELION-A-NJ2018-174132

PATIENT
  Age: 47 Year
  Sex: Male

DRUGS (3)
  1. TYVASO [Concomitant]
     Active Substance: TREPROSTINIL
     Dosage: 54 MCG, QID
     Dates: end: 20180705
  2. SILDENAFIL. [Concomitant]
     Active Substance: SILDENAFIL
     Dosage: 100 MG, TID
  3. OPSUMIT [Suspect]
     Active Substance: MACITENTAN
     Indication: PULMONARY HYPERTENSION
     Dosage: UNK
     Route: 048
     Dates: start: 20151001

REACTIONS (4)
  - Cardiac arrest [Recovered/Resolved]
  - Respiratory failure [Not Recovered/Not Resolved]
  - Oesophageal dilation procedure [Recovered/Resolved]
  - Oesophagogastroduodenoscopy [Recovered/Resolved]

NARRATIVE: CASE EVENT DATE: 20180607
